FAERS Safety Report 22622941 (Version 1)
Quarter: 2023Q2

REPORT INFORMATION
  Report Type: Spontaneous
  Country: DE (occurrence: None)
  Receive Date: 20230621
  Receipt Date: 20230621
  Transmission Date: 20230721
  Serious: Yes (Other)
  Sender: FDA-Public Use
  Company Number: DE-ROCHE-3369160

PATIENT
  Age: 34 Year
  Sex: Female

DRUGS (2)
  1. OCREVUS [Suspect]
     Active Substance: OCRELIZUMAB
     Indication: Multiple sclerosis
     Route: 065
     Dates: start: 201812
  2. CORTISONE [Concomitant]
     Active Substance: CORTISONE

REACTIONS (5)
  - Herpes virus infection [Unknown]
  - Nasopharyngitis [Unknown]
  - Cystitis [Unknown]
  - Noninfective gingivitis [Unknown]
  - Thrombosis [Unknown]
